FAERS Safety Report 9007124 (Version 1)
Quarter: 2013Q1

REPORT INFORMATION
  Report Type: Spontaneous
  Country: DE (occurrence: DE)
  Receive Date: 20130110
  Receipt Date: 20130110
  Transmission Date: 20140127
  Serious: Yes (Hospitalization)
  Sender: FDA-Public Use
  Company Number: DE-INCYTE CORPORATION-2012IN002628

PATIENT
  Sex: Female

DRUGS (3)
  1. JAKAVI [Suspect]
     Indication: MYELOFIBROSIS
     Dosage: 5 MG, EVERY OTHER DAY
     Route: 065
     Dates: start: 20121105
  2. JAKAVI [Suspect]
     Dosage: 5 MG, DAILY
     Route: 065
  3. JAKAVI [Suspect]
     Dosage: 5 MG, EVERY OTHER DAY
     Route: 065
     Dates: start: 20121228

REACTIONS (4)
  - Venous aneurysm [Recovered/Resolved]
  - Puncture site haemorrhage [Unknown]
  - Conjunctival haemorrhage [Unknown]
  - Platelet count decreased [Unknown]
